FAERS Safety Report 23717177 (Version 1)
Quarter: 2024Q2

REPORT INFORMATION
  Report Type: Spontaneous
  Country: US (occurrence: US)
  Receive Date: 20240408
  Receipt Date: 20240408
  Transmission Date: 20240716
  Serious: Yes (Hospitalization, Other)
  Sender: FDA-Public Use
  Company Number: US-MYLANLABS-2024M1030160

PATIENT
  Age: 74 Year
  Sex: Male

DRUGS (22)
  1. TACROLIMUS [Suspect]
     Active Substance: TACROLIMUS
     Indication: Immunosuppressant drug therapy
     Dosage: 3 MILLIGRAM, BID, IMMEDIATE RELEASE
     Route: 065
  2. CYCLOSPORINE [Interacting]
     Active Substance: CYCLOSPORINE
     Indication: Immunosuppressant drug therapy
     Dosage: 150 MILLIGRAM, BID, PAUSED
     Route: 065
  3. CYCLOSPORINE [Interacting]
     Active Substance: CYCLOSPORINE
     Dosage: UNK, THEN RESTARTED
     Route: 065
  4. CYCLOSPORINE [Interacting]
     Active Substance: CYCLOSPORINE
     Dosage: UNK, LATER DOSE REDUCED
     Route: 065
  5. ROSUVASTATIN [Interacting]
     Active Substance: ROSUVASTATIN
     Indication: Coronary artery disease
     Dosage: 40 MILLIGRAM, QD, DRUG PAUSED
     Route: 065
  6. ROSUVASTATIN [Interacting]
     Active Substance: ROSUVASTATIN
     Indication: Hyperlipidaemia
     Dosage: UNK, THEN RESTARTED AND LATER DISCONTINUED
     Route: 065
  7. LEFLUNOMIDE [Interacting]
     Active Substance: LEFLUNOMIDE
     Indication: Polyomavirus viraemia
     Dosage: 20 MILLIGRAM, QD,  DRUG PAUSED
     Route: 065
  8. LEFLUNOMIDE [Interacting]
     Active Substance: LEFLUNOMIDE
     Dosage: UNK, THEN RESTARTED AND LATER DISCONTINUED
     Route: 065
  9. METHYLPREDNISOLONE [Suspect]
     Active Substance: METHYLPREDNISOLONE
     Indication: Immunosuppressant drug therapy
     Dosage: 250 MILLIGRAM
     Route: 042
  10. MYCOPHENOLATE MOFETIL [Concomitant]
     Active Substance: MYCOPHENOLATE MOFETIL
     Indication: Immunosuppressant drug therapy
     Dosage: 720 MILLIGRAM, BID
     Route: 065
  11. MYCOPHENOLATE MOFETIL [Concomitant]
     Active Substance: MYCOPHENOLATE MOFETIL
     Dosage: 180 MILLIGRAM, BID
     Route: 065
  12. MYCOPHENOLATE MOFETIL [Concomitant]
     Active Substance: MYCOPHENOLATE MOFETIL
     Dosage: 360 MILLIGRAM, BID
     Route: 065
  13. BELATACEPT [Concomitant]
     Active Substance: BELATACEPT
     Indication: Immunosuppressant drug therapy
     Dosage: UNK, INFUSION
     Route: 065
  14. PREDNISONE [Concomitant]
     Active Substance: PREDNISONE
     Indication: Immunosuppressant drug therapy
     Dosage: 10 MILLIGRAM, QD, DRUG PAUSED
     Route: 065
  15. PREDNISONE [Concomitant]
     Active Substance: PREDNISONE
     Dosage: UNK, THEN RESTARTED, AND CONTINUED
     Route: 065
  16. COTRIMOXAZOLE [Concomitant]
     Active Substance: SULFAMETHOXAZOLE\TRIMETHOPRIM
     Indication: Prophylaxis
     Dosage: UNK, TID, ADMINISTERED THRICE DAILY
     Route: 065
  17. VALGANCICLOVIR [Concomitant]
     Active Substance: VALGANCICLOVIR
     Indication: Prophylaxis
     Dosage: 450 MILLIGRAM
     Route: 065
  18. CLOTRIMAZOLE [Concomitant]
     Active Substance: CLOTRIMAZOLE
     Indication: Prophylaxis
     Dosage: 10 MILLIGRAM, QID
     Route: 065
  19. NIFEDIPINE [Concomitant]
     Active Substance: NIFEDIPINE
     Indication: Hypertension
     Dosage: 60 MILLIGRAM, QD, DRUG PAUSED
     Route: 065
  20. NIFEDIPINE [Concomitant]
     Active Substance: NIFEDIPINE
     Dosage: UNK, THEN RESTARTED, AND CONTINUED
     Route: 065
  21. CARVEDILOL [Concomitant]
     Active Substance: CARVEDILOL
     Indication: Hypertension
     Dosage: 25 MILLIGRAM, BID, DRUG PAUSED
     Route: 065
  22. CARVEDILOL [Concomitant]
     Active Substance: CARVEDILOL
     Dosage: UNK, THEN RESTARTED, AND CONTINUED
     Route: 065

REACTIONS (7)
  - Myopathy [Recovering/Resolving]
  - Rhabdomyolysis [Recovering/Resolving]
  - Acute kidney injury [Recovering/Resolving]
  - Drug interaction [Recovering/Resolving]
  - Loss of personal independence in daily activities [Unknown]
  - Tremor [Unknown]
  - Toxicity to various agents [Unknown]
